FAERS Safety Report 26065404 (Version 1)
Quarter: 2025Q4

REPORT INFORMATION
  Report Type: Spontaneous
  Country: US (occurrence: US)
  Receive Date: 20251119
  Receipt Date: 20251119
  Transmission Date: 20260118
  Serious: Yes (Hospitalization, Other)
  Sender: VELOXIS PHARMACEUTICALS
  Company Number: US-Calliditas-2025CAL02567

PATIENT
  Age: 48 Year
  Sex: Male

DRUGS (17)
  1. TARPEYO [Suspect]
     Active Substance: BUDESONIDE
     Indication: Haematuria
     Dosage: TAKE 4 CAPSULES 16 MILLIGRAM, QD
  2. TARPEYO [Suspect]
     Active Substance: BUDESONIDE
     Indication: IgA nephropathy
  3. TYLENOL [Concomitant]
     Active Substance: ACETAMINOPHEN
     Indication: Product used for unknown indication
     Dosage: UNK
  4. UROXATRAL [Concomitant]
     Active Substance: ALFUZOSIN HYDROCHLORIDE
     Indication: Product used for unknown indication
     Dosage: UNK
  5. ALPRAZOLAM [Concomitant]
     Active Substance: ALPRAZOLAM
     Indication: Product used for unknown indication
     Dosage: UNK
  6. AMANTADINE [Concomitant]
     Active Substance: AMANTADINE
     Indication: Product used for unknown indication
     Dosage: UNK
  7. AMLODIPINE [Concomitant]
     Active Substance: AMLODIPINE BESYLATE
     Indication: Product used for unknown indication
     Dosage: UNK
  8. APIXABAN [Concomitant]
     Active Substance: APIXABAN
     Indication: Product used for unknown indication
     Dosage: UNK
  9. ATOVAQUONE [Concomitant]
     Active Substance: ATOVAQUONE
     Indication: Product used for unknown indication
     Dosage: UNK
  10. AZATHIOPRINE [Concomitant]
     Active Substance: AZATHIOPRINE
     Indication: Product used for unknown indication
     Dosage: UNK
  11. WELLBUTRIN [Concomitant]
     Active Substance: BUPROPION HYDROCHLORIDE
     Indication: Product used for unknown indication
     Dosage: UNK
  12. BUSPAR [Concomitant]
     Active Substance: BUSPIRONE HYDROCHLORIDE
     Indication: Product used for unknown indication
     Dosage: UNK
  13. COREG [Concomitant]
     Active Substance: CARVEDILOL
     Indication: Product used for unknown indication
     Dosage: UNK
  14. LOPROX [Concomitant]
     Active Substance: CICLOPIROX\CICLOPIROX OLAMINE
     Indication: Product used for unknown indication
     Dosage: UNK
  15. CLONIDINE [Concomitant]
     Active Substance: CLONIDINE
     Indication: Product used for unknown indication
     Dosage: UNK
  16. DEXILANT SOLUTAB [Concomitant]
     Active Substance: DEXLANSOPRAZOLE
     Indication: Product used for unknown indication
     Dosage: UNK
  17. SPRAVATO [Concomitant]
     Active Substance: ESKETAMINE
     Indication: Product used for unknown indication
     Dosage: UNK

REACTIONS (8)
  - Aspiration [Recovering/Resolving]
  - Pneumonia [Recovering/Resolving]
  - Sepsis [Recovering/Resolving]
  - Kidney infection [Recovering/Resolving]
  - Cerebrovascular accident [Recovering/Resolving]
  - Nephrolithiasis [Unknown]
  - Dialysis [Unknown]
  - Off label use [Unknown]

NARRATIVE: CASE EVENT DATE: 20250605
